APPROVED DRUG PRODUCT: ERYC SPRINKLES
Active Ingredient: ERYTHROMYCIN
Strength: 125MG
Dosage Form/Route: CAPSULE, DELAYED REL PELLETS;ORAL
Application: N050593 | Product #001
Applicant: HOSPIRA INC
Approved: Jul 22, 1985 | RLD: No | RS: No | Type: DISCN